FAERS Safety Report 9786107 (Version 1)
Quarter: 2013Q4

REPORT INFORMATION
  Report Type: Spontaneous
  Country: US (occurrence: None)
  Receive Date: 20131224
  Receipt Date: 20131224
  Transmission Date: 20140711
  Serious: Yes (Death, Hospitalization)
  Sender: FDA-Public Use
  Company Number: CC0005

PATIENT
  Age: 50 Year
  Sex: Male

DRUGS (2)
  1. SESTAMIBI [Suspect]
     Indication: IMAGING PROCEDURE
     Dosage: 21.3 MCI/ML /ONCE /IV
     Route: 042
     Dates: start: 20131211
  2. SESTAMIBI [Suspect]
     Indication: PARATHYROID DISORDER
     Dosage: 21.3 MCI/ML /ONCE /IV
     Route: 042
     Dates: start: 20131211

REACTIONS (2)
  - Dyspnoea [None]
  - Loss of consciousness [None]
